FAERS Safety Report 8756932 (Version 3)
Quarter: 2012Q4

REPORT INFORMATION
  Report Type: Report from Study
  Country: US (occurrence: US)
  Receive Date: 20120828
  Receipt Date: 20121015
  Transmission Date: 20130627
  Serious: Yes (Hospitalization, Other)
  Sender: FDA-Public Use
  Company Number: US-BRISTOL-MYERS SQUIBB COMPANY-16844078

PATIENT
  Age: 64 Year
  Sex: Male

DRUGS (8)
  1. BLINDED: SAXAGLIPTIN [Suspect]
     Indication: TYPE 2 DIABETES MELLITUS
     Dates: start: 20100630
  2. METFORMIN HCL [Suspect]
     Indication: TYPE 2 DIABETES MELLITUS
  3. GLIPIZIDE [Suspect]
     Indication: TYPE 2 DIABETES MELLITUS
  4. LANTUS [Suspect]
     Indication: TYPE 2 DIABETES MELLITUS
     Dosage: 1df= 40IU/units
  5. BLINDED: PLACEBO [Suspect]
     Indication: TYPE 2 DIABETES MELLITUS
     Dates: start: 20100630
  6. COUMADIN [Concomitant]
     Dates: start: 20120802
  7. ASPIRIN [Concomitant]
     Dosage: 1DF: }100mg, ={100mg
  8. LOVENOX [Concomitant]
     Dates: start: 20120802

REACTIONS (6)
  - Pulmonary embolism [Recovering/Resolving]
  - Prostatomegaly [Recovered/Resolved]
  - Pulmonary mass [None]
  - Urinary retention [None]
  - Haematuria [None]
  - Haematoma [None]
